FAERS Safety Report 5748284-1 (Version None)
Quarter: 2008Q2

REPORT INFORMATION
  Report Type: 
  Country: None (occurrence: None)
  Receive Date: 20080520
  Receipt Date: 20080506
  Transmission Date: 20081010
  Serious: Yes (Hospitalization)
  Sender: FDA-Public Use
  Company Number: 234124J08USA

PATIENT
  Age: 44 Year
  Weight: 46.2669 kg

DRUGS (7)
  1. REBIF [Suspect]
     Indication: MULTIPLE SCLEROSIS
     Dosage: 44 MCG, NOT REPORTED, SUBCUTANEOUS
     Route: 058
     Dates: start: 20080304, end: 20080422
  2. FIORICET [Suspect]
     Indication: MIGRAINE
     Dosage: NOT REPORTED, NOT REPORTED, ORAL
     Route: 048
     Dates: end: 20080101
  3. FIORICET [Suspect]
     Indication: MULTIPLE SCLEROSIS
     Dosage: NOT REPORTED, NOT REPORTED, ORAL
     Route: 048
     Dates: end: 20080101
  4. FIORICET [Suspect]
     Indication: PAIN
     Dosage: NOT REPORTED, NOT REPORTED, ORAL
     Route: 048
     Dates: end: 20080101
  5. SEROQUEL [Concomitant]
  6. CLONAZEPAM [Concomitant]
  7. VALTREX [Concomitant]

REACTIONS (3)
  - DRUG DEPENDENCE [None]
  - PETIT MAL EPILEPSY [None]
  - TIC [None]
